FAERS Safety Report 4687769-6 (Version None)
Quarter: 2005Q2

REPORT INFORMATION
  Report Type: 
  Country: None (occurrence: None)
  Receive Date: 20050609
  Receipt Date: 20050609
  Transmission Date: 20051028
  Serious: Yes (Hospitalization)
  Sender: FDA-Public Use
  Company Number: None

PATIENT
  Age: 3 Year
  Sex: Male
  Weight: 15 kg

DRUGS (2)
  1. CARIMUNE [Suspect]
     Indication: HYPOGAMMAGLOBULINAEMIA
     Dosage: 7 GRAMS X1 DOSE INTRAVENOU
     Route: 042
     Dates: start: 20050606, end: 20050606
  2. CARIMUNE [Suspect]

REACTIONS (5)
  - HEADACHE [None]
  - NAUSEA [None]
  - PHOTOPHOBIA [None]
  - PYREXIA [None]
  - VOMITING [None]
